FAERS Safety Report 13576539 (Version 1)
Quarter: 2017Q2

REPORT INFORMATION
  Report Type: Report from Study
  Country: US (occurrence: US)
  Receive Date: 20170524
  Receipt Date: 20170524
  Transmission Date: 20170830
  Serious: Yes (Death, Other)
  Sender: FDA-Public Use
  Company Number: US-PFIZER INC-2017016316

PATIENT
  Age: 59 Year
  Sex: Female

DRUGS (1)
  1. IBRANCE [Suspect]
     Active Substance: PALBOCICLIB
     Indication: BRAIN NEOPLASM MALIGNANT
     Dosage: 125 MG, DAILY
     Route: 048
     Dates: start: 20170107

REACTIONS (6)
  - Death [Fatal]
  - Confusional state [Unknown]
  - Product use in unapproved indication [Unknown]
  - Asthenia [Unknown]
  - Cough [Unknown]
  - Disorientation [Unknown]

NARRATIVE: CASE EVENT DATE: 20170509
